FAERS Safety Report 25063356 (Version 1)
Quarter: 2025Q1

REPORT INFORMATION
  Report Type: Spontaneous
  Country: US (occurrence: None)
  Receive Date: 20250310
  Receipt Date: 20250310
  Transmission Date: 20250409
  Serious: Yes (Hospitalization)
  Sender: FDA-CTU
  Company Number: None

PATIENT

DRUGS (1)
  1. EFGARTIGIMOD ALFA [Suspect]
     Active Substance: EFGARTIGIMOD ALFA
     Route: 058

REACTIONS (7)
  - Sneezing [None]
  - Pruritus [None]
  - Flushing [None]
  - Erythema [None]
  - Throat irritation [None]
  - Wheezing [None]
  - Anaphylactic reaction [None]

NARRATIVE: CASE EVENT DATE: 20250225
